FAERS Safety Report 10498112 (Version 1)
Quarter: 2014Q4

REPORT INFORMATION
  Report Type: Spontaneous
  Country: US (occurrence: None)
  Receive Date: 20141003
  Receipt Date: 20141003
  Transmission Date: 20150528
  Serious: Yes (Hospitalization, Other)
  Sender: FDA-Public Use
  Company Number: None

PATIENT
  Age: 82 Year
  Sex: Male
  Weight: 101 kg

DRUGS (1)
  1. WARFARIN [Suspect]
     Active Substance: WARFARIN
     Indication: ATRIAL FIBRILLATION
     Route: 048
     Dates: start: 20111219, end: 20121015

REACTIONS (6)
  - Fall [None]
  - Loss of consciousness [None]
  - Headache [None]
  - Cerebral haematoma [None]
  - Haemorrhage [None]
  - Head injury [None]

NARRATIVE: CASE EVENT DATE: 20121015
